FAERS Safety Report 9068601 (Version 1)
Quarter: 2013Q1

REPORT INFORMATION
  Report Type: Spontaneous
  Country: US (occurrence: None)
  Receive Date: 20130212
  Receipt Date: 20130212
  Transmission Date: 20140127
  Serious: Yes (Disabling)
  Sender: FDA-Public Use
  Company Number: None

PATIENT
  Age: 53 Year
  Sex: Male
  Weight: 76.2 kg

DRUGS (2)
  1. LYRICA 50MG TO 100 MGS DAILY EVERGREEN PHARMACY [Suspect]
     Indication: PAIN
     Dosage: 100MGS DAILY PO
     Route: 048
  2. CYMBALTA [Suspect]
     Dosage: 30MGS  DAILY  PO
     Route: 048

REACTIONS (8)
  - Aggression [None]
  - Loss of employment [None]
  - Mobility decreased [None]
  - Pain [None]
  - Agitation [None]
  - Depression [None]
  - Fatigue [None]
  - Suicidal ideation [None]
